FAERS Safety Report 15668714 (Version 1)
Quarter: 2018Q4

REPORT INFORMATION
  Report Type: Spontaneous
  Country: JP (occurrence: JP)
  Receive Date: 20181129
  Receipt Date: 20181129
  Transmission Date: 20190205
  Serious: Yes (Hospitalization)
  Sender: FDA-Public Use
  Company Number: JP-ORION CORPORATION ORION PHARMA-ENT 2018-0132

PATIENT
  Sex: Female

DRUGS (3)
  1. CARBIDOPA, L-DOPA [Concomitant]
     Indication: PARKINSON^S DISEASE
     Route: 065
  2. COMTAN [Suspect]
     Active Substance: ENTACAPONE
     Indication: PARKINSON^S DISEASE
     Route: 065
  3. COMTAN [Suspect]
     Active Substance: ENTACAPONE
     Route: 065

REACTIONS (7)
  - Psychotic disorder [Unknown]
  - Dysphagia [Not Recovered/Not Resolved]
  - Delusion [Unknown]
  - Hallucination [Unknown]
  - Dyskinesia [Unknown]
  - Muscle rigidity [Unknown]
  - Immobile [Unknown]
